FAERS Safety Report 21302918 (Version 1)
Quarter: 2022Q3

REPORT INFORMATION
  Report Type: Spontaneous
  Country: JP (occurrence: JP)
  Receive Date: 20220907
  Receipt Date: 20220907
  Transmission Date: 20221027
  Serious: Yes (Hospitalization)
  Sender: FDA-Public Use
  Company Number: JP-JNJFOC-20220910291

PATIENT

DRUGS (1)
  1. REMINYL [Suspect]
     Active Substance: GALANTAMINE
     Indication: Dementia Alzheimer^s type
     Dosage: DOSE UNKNOWN
     Route: 048

REACTIONS (2)
  - Hospitalisation [Unknown]
  - Treatment noncompliance [Unknown]
